FAERS Safety Report 19153327 (Version 1)
Quarter: 2021Q2

REPORT INFORMATION
  Report Type: Spontaneous
  Country: US (occurrence: US)
  Receive Date: 20210419
  Receipt Date: 20210419
  Transmission Date: 20210717
  Serious: No
  Sender: FDA-Public Use
  Company Number: US-ANTARES PHARMA, INC.-2021-SPO-TX-0338

PATIENT

DRUGS (1)
  1. XYOSTED [Suspect]
     Active Substance: TESTOSTERONE ENANTHATE
     Indication: BLOOD TESTOSTERONE
     Dosage: 75 MG/0.5ML, QWK
     Route: 058

REACTIONS (1)
  - Wrong device used [Unknown]

NARRATIVE: CASE EVENT DATE: 20210322
